FAERS Safety Report 5282290-9 (Version None)
Quarter: 2007Q1

REPORT INFORMATION
  Report Type: 
  Country: None (occurrence: None)
  Receive Date: 20070331
  Receipt Date: 20070320
  Transmission Date: 20070707
  Serious: Yes (Other)
  Sender: FDA-Public Use
  Company Number: FR-PFIZER INC-2007023761

PATIENT
  Sex: Female
  Weight: 69 kg

DRUGS (5)
  1. LYRICA [Suspect]
     Indication: POST HERPETIC NEURALGIA
     Route: 048
     Dates: start: 20060919, end: 20060929
  2. ALL OTHER THERAPEUTIC PRODUCTS [Concomitant]
  3. LEVOTHYROXINE SODIUM [Concomitant]
     Route: 048
  4. CYAMEMAZINE [Concomitant]
     Route: 048
  5. ACEPROMETAZINE [Concomitant]
     Route: 048

REACTIONS (7)
  - BLOOD PRESSURE INCREASED [None]
  - DYSPNOEA [None]
  - HYPERSENSITIVITY [None]
  - NAUSEA [None]
  - RESPIRATORY DEPRESSION [None]
  - TACHYCARDIA [None]
  - VERTIGO [None]
